FAERS Safety Report 15677194 (Version 3)
Quarter: 2019Q1

REPORT INFORMATION
  Report Type: Spontaneous
  Country: JP (occurrence: JP)
  Receive Date: 20181130
  Receipt Date: 20190307
  Transmission Date: 20190417
  Serious: Yes (Hospitalization, Other)
  Sender: FDA-Public Use
  Company Number: JP-BRISTOL-MYERS SQUIBB COMPANY-BMS-2018-113051

PATIENT
  Age: 77 Year
  Sex: Male
  Weight: 59 kg

DRUGS (5)
  1. ZITHROMAC [Concomitant]
     Active Substance: AZITHROMYCIN DIHYDRATE
     Indication: PYREXIA
     Dosage: 2 G, SINGLE
     Route: 048
     Dates: start: 20181112
  2. OPDIVO [Suspect]
     Active Substance: NIVOLUMAB
     Indication: NON-SMALL CELL LUNG CANCER RECURRENT
     Dosage: 240 MG, SINGLE
     Route: 041
     Dates: start: 20181107
  3. AVELOX [Concomitant]
     Active Substance: MOXIFLOXACIN HYDROCHLORIDE
     Indication: PYREXIA
     Dosage: 400 MG, EVERYDAY
     Route: 048
     Dates: start: 20181108
  4. COCARL [Concomitant]
     Active Substance: ACETAMINOPHEN
     Indication: PRODUCT USED FOR UNKNOWN INDICATION
     Dosage: UNK
     Route: 065
     Dates: start: 20181112
  5. OMEGACIN [Concomitant]
     Active Substance: BIAPENEM
     Indication: PYREXIA
     Dosage: 0.3 G, Q8H
     Route: 041
     Dates: start: 20181115

REACTIONS (6)
  - Respiratory failure [Unknown]
  - Off label use [Unknown]
  - Immune thrombocytopenic purpura [Recovering/Resolving]
  - Pyrexia [Recovered/Resolved]
  - Cardiac failure [Unknown]
  - C-reactive protein increased [Unknown]

NARRATIVE: CASE EVENT DATE: 20181109
